FAERS Safety Report 16989189 (Version 16)
Quarter: 2022Q3

REPORT INFORMATION
  Report Type: Spontaneous
  Country: US (occurrence: US)
  Receive Date: 20191104
  Receipt Date: 20220721
  Transmission Date: 20221027
  Serious: Yes (Other)
  Sender: FDA-Public Use
  Company Number: US-PFIZER INC-2019471839

PATIENT
  Age: 74 Year
  Sex: Female
  Weight: 58.97 kg

DRUGS (1)
  1. PHENYTOIN SODIUM [Suspect]
     Active Substance: PHENYTOIN SODIUM
     Indication: Epilepsy
     Dosage: 100 MG

REACTIONS (7)
  - Drug ineffective [Unknown]
  - Seizure [Unknown]
  - Condition aggravated [Unknown]
  - Dementia Alzheimer^s type [Unknown]
  - Head injury [Unknown]
  - Fall [Unknown]
  - Memory impairment [Unknown]
